FAERS Safety Report 8114519-3 (Version None)
Quarter: 2012Q1

REPORT INFORMATION
  Report Type: 
  Country: None (occurrence: None)
  Receive Date: 20120206
  Receipt Date: 20120130
  Transmission Date: 20120608
  Serious: No
  Sender: FDA-Public Use
  Company Number: US-PFIZER INC-2012009946

PATIENT
  Sex: Female
  Weight: 68.027 kg

DRUGS (6)
  1. SPIRIVA [Concomitant]
     Indication: ASTHMA
     Dosage: 18 UG, UNK
  2. NEURONTIN [Suspect]
     Indication: CYSTITIS INTERSTITIAL
  3. ADVAIR DISKUS 100/50 [Concomitant]
     Indication: ASTHMA
     Dosage: 500/50 UG, UNK
  4. SINGULAIR [Concomitant]
     Indication: ASTHMA
     Dosage: UNK
  5. ALBUTEROL [Concomitant]
     Indication: ASTHMA
     Dosage: UNK
  6. NEURONTIN [Suspect]
     Indication: NERVE INJURY
     Dosage: 600 MG, 3X/DAY
     Route: 048
     Dates: start: 20090201

REACTIONS (3)
  - THINKING ABNORMAL [None]
  - GASTRIC DISORDER [None]
  - SOMNOLENCE [None]
